FAERS Safety Report 14457964 (Version 1)
Quarter: 2018Q1

REPORT INFORMATION
  Report Type: Spontaneous
  Country: CZ (occurrence: CZ)
  Receive Date: 20180130
  Receipt Date: 20180130
  Transmission Date: 20180509
  Serious: Yes (Death, Other)
  Sender: FDA-Public Use
  Company Number: CZ-FRESENIUS KABI-FK201800882

PATIENT
  Age: 35 Year
  Sex: Female

DRUGS (2)
  1. PACLITAXEL (MANUFACTURER UNKNOWN) [Suspect]
     Active Substance: PACLITAXEL
     Indication: VAGINAL CANCER METASTATIC
     Route: 065
  2. CARBOPLATIN (MANUFACTURER UNKNOWN) [Suspect]
     Active Substance: CARBOPLATIN
     Indication: VAGINAL CANCER METASTATIC
     Route: 065

REACTIONS (5)
  - Ureteric obstruction [Unknown]
  - Sepsis [Fatal]
  - Urosepsis [Unknown]
  - Disease progression [Fatal]
  - Intestinal obstruction [Fatal]
